FAERS Safety Report 6504952-5 (Version None)
Quarter: 2009Q4

REPORT INFORMATION
  Report Type: 
  Country: None (occurrence: None)
  Receive Date: 20091201
  Receipt Date: 20081215
  Transmission Date: 20100525
  Serious: Yes (Hospitalization, Other)
  Sender: FDA-Public Use
  Company Number: 2008-179102-NL

PATIENT
  Age: 36 Year
  Sex: Female
  Weight: 117.5 kg

DRUGS (5)
  1. NUVARING [Suspect]
     Indication: DRUG USE FOR UNKNOWN INDICATION
     Dates: start: 20070326, end: 20070525
  2. WARFARIN SODIUM [Concomitant]
  3. ALBUTEROL [Concomitant]
  4. MULTI-VITAMINS [Concomitant]
  5. TYLENOL-500 [Concomitant]

REACTIONS (2)
  - DEEP VEIN THROMBOSIS [None]
  - PULMONARY EMBOLISM [None]
